FAERS Safety Report 6189678-2 (Version None)
Quarter: 2009Q2

REPORT INFORMATION
  Report Type: 
  Country: None (occurrence: None)
  Receive Date: 20090514
  Receipt Date: 20070914
  Transmission Date: 20091009
  Serious: Yes (Hospitalization)
  Sender: FDA-Public Use
  Company Number: US-ASTRAZENECA-2006UW24792

PATIENT
  Age: 15679 Day
  Sex: Male
  Weight: 135.2 kg

DRUGS (19)
  1. SEROQUEL [Suspect]
     Indication: NERVOUSNESS
     Route: 048
     Dates: start: 20020529, end: 20031105
  2. SEROQUEL [Suspect]
     Dosage: 25 MG -100 MG
     Route: 048
     Dates: start: 20020529, end: 20040915
  3. RISPERDAL [Concomitant]
     Route: 048
  4. RISPERDAL [Concomitant]
     Route: 048
  5. VICODIN [Concomitant]
     Route: 048
  6. NYSTATIN [Concomitant]
     Route: 048
  7. CLONAZEPAM [Concomitant]
     Route: 048
  8. ALPRAZOLAM [Concomitant]
     Route: 048
  9. PAROXETINE HCL [Concomitant]
     Route: 048
  10. ALBUTEROL [Concomitant]
     Route: 048
  11. AVANDIA [Concomitant]
     Route: 048
  12. CYMBALTA [Concomitant]
     Route: 048
  13. CELEBREX [Concomitant]
     Route: 048
  14. LIPITOR [Concomitant]
     Route: 048
  15. ACTOS [Concomitant]
     Route: 048
  16. CITALOPRAM HYDROBROMIDE [Concomitant]
     Route: 048
  17. ETORICOXIB [Concomitant]
     Route: 048
  18. PROPRANOLOL [Concomitant]
     Route: 048
  19. BUPROPION HCL [Concomitant]
     Route: 048

REACTIONS (16)
  - AVULSION FRACTURE [None]
  - BASAL CELL CARCINOMA [None]
  - CONTUSION [None]
  - COUGH [None]
  - DIABETES MELLITUS [None]
  - ERYTHEMA [None]
  - GROIN PAIN [None]
  - HAND FRACTURE [None]
  - HEPATIC ENZYME INCREASED [None]
  - ILL-DEFINED DISORDER [None]
  - NASAL CONGESTION [None]
  - OROPHARYNGEAL PAIN [None]
  - POLLAKIURIA [None]
  - RESPIRATORY TRACT CONGESTION [None]
  - TENDERNESS [None]
  - THIRST [None]
